FAERS Safety Report 7367180-X (Version None)
Quarter: 2011Q1

REPORT INFORMATION
  Report Type: 
  Country: None (occurrence: None)
  Receive Date: 20110322
  Receipt Date: 20110311
  Transmission Date: 20110831
  Serious: Yes (Hospitalization)
  Sender: FDA-Public Use
  Company Number: ES-JNJFOC-20110305878

PATIENT
  Age: 75 Year
  Sex: Female

DRUGS (5)
  1. IBUPROFEN [Suspect]
     Indication: PAIN
     Route: 048
  2. LORAZEPAM [Concomitant]
     Indication: ANXIETY
     Route: 048
  3. LYRICA [Concomitant]
     Indication: SPONDYLOLISTHESIS
     Route: 048
  4. HYDROMORPHONE HCL [Suspect]
     Indication: SPONDYLOLISTHESIS
     Route: 048
  5. PAROXETINE HCL [Concomitant]
     Indication: SPONDYLOLISTHESIS

REACTIONS (2)
  - RESPIRATORY FAILURE [None]
  - RENAL FAILURE [None]
